FAERS Safety Report 6736698-2 (Version None)
Quarter: 2010Q2

REPORT INFORMATION
  Report Type: 
  Country: None (occurrence: None)
  Receive Date: 20100521
  Receipt Date: 20100510
  Transmission Date: 20101027
  Serious: Yes (Hospitalization, Other)
  Sender: FDA-Public Use
  Company Number: PHEH2006US06354

PATIENT
  Sex: Male

DRUGS (30)
  1. AREDIA [Suspect]
     Indication: MULTIPLE MYELOMA
     Dosage: 90 MG,UNK
     Route: 042
     Dates: start: 19970601
  2. AREDIA [Suspect]
     Dosage: 90 MG, QMO
     Dates: start: 20021201, end: 20030801
  3. ZOMETA [Suspect]
     Indication: MULTIPLE MYELOMA
     Dosage: 4 MG, QMO
     Dates: start: 20031001, end: 20060411
  4. BETAPACE [Concomitant]
  5. OXYCODONE [Concomitant]
  6. KLONOPIN [Concomitant]
  7. LEXAPRO [Concomitant]
  8. FUROSEMIDE [Concomitant]
  9. LISINOPRIL [Concomitant]
  10. SPIRONOLACTONE [Concomitant]
  11. LORAZEPAM [Concomitant]
  12. PLAVIX [Concomitant]
  13. PREDNISONE [Concomitant]
     Indication: ARTHRITIS
     Dosage: 5 MG, QD
     Dates: start: 19950901
  14. STEROIDS NOS [Concomitant]
  15. OXYCONTIN [Concomitant]
  16. SERZONE [Concomitant]
     Indication: DEPRESSION
  17. TENORMIN [Concomitant]
  18. ST. JOHN'S WORT [Concomitant]
  19. BETAPACE [Concomitant]
     Indication: ARRHYTHMIA
  20. POTASSIUM [Concomitant]
  21. LASIX [Concomitant]
  22. MAGNESIUM [Concomitant]
  23. ZINC [Concomitant]
  24. MELPHALAN HYDROCHLORIDE [Concomitant]
  25. DECADRON                                /NET/ [Concomitant]
  26. NITROGLYCERIN ^DAVID BULL^ [Concomitant]
     Indication: ANGINA PECTORIS
  27. FELDENE [Concomitant]
  28. ASPIRIN [Concomitant]
  29. PRILOSEC [Concomitant]
  30. COUMADIN [Concomitant]

REACTIONS (63)
  - ANAEMIA [None]
  - ANGINA UNSTABLE [None]
  - ANHEDONIA [None]
  - ANXIETY [None]
  - ARTERIAL OCCLUSIVE DISEASE [None]
  - ARTERIOSCLEROSIS CORONARY ARTERY [None]
  - ARTHRALGIA [None]
  - ARTHRITIS [None]
  - ASPIRATION JOINT [None]
  - ATRIAL FIBRILLATION [None]
  - BACK PAIN [None]
  - BLISTER [None]
  - BLOOD IMMUNOGLOBULIN G INCREASED [None]
  - BONE DISORDER [None]
  - BONE OPERATION [None]
  - BONE PAIN [None]
  - BONE SWELLING [None]
  - BURNING SENSATION [None]
  - CARDIAC ARREST [None]
  - CARDIAC FAILURE CONGESTIVE [None]
  - CARDIOMEGALY [None]
  - CATHETERISATION CARDIAC [None]
  - COMPRESSION STOCKINGS APPLICATION [None]
  - CORONARY ANGIOPLASTY [None]
  - CORONARY ARTERIAL STENT INSERTION [None]
  - CORONARY ARTERY DISEASE [None]
  - DECUBITUS ULCER [None]
  - DEPRESSION [None]
  - DERMATITIS [None]
  - DYSPNOEA EXERTIONAL [None]
  - EDENTULOUS [None]
  - ERYTHEMA [None]
  - EYE OPERATION [None]
  - FALL [None]
  - FOOT DEFORMITY [None]
  - FRACTURED SACRUM [None]
  - GASTROOESOPHAGEAL REFLUX DISEASE [None]
  - GENERAL PHYSICAL HEALTH DETERIORATION [None]
  - HAEMATOCHEZIA [None]
  - HAEMORRHAGE [None]
  - INSOMNIA [None]
  - MARROW HYPERPLASIA [None]
  - MASS [None]
  - NEURALGIA [None]
  - NEUROPATHY PERIPHERAL [None]
  - OEDEMA PERIPHERAL [None]
  - OESOPHAGEAL DISORDER [None]
  - OSTEONECROSIS OF JAW [None]
  - OSTEOPENIA [None]
  - PAIN [None]
  - PAIN IN JAW [None]
  - PRURITUS [None]
  - PSORIASIS [None]
  - SKIN LACERATION [None]
  - SKIN ULCER [None]
  - SURGERY [None]
  - SYNCOPE [None]
  - TENDON INJURY [None]
  - TENDON RUPTURE [None]
  - THORACOTOMY [None]
  - TOBACCO USER [None]
  - TOOTH EXTRACTION [None]
  - VENOUS INSUFFICIENCY [None]
